FAERS Safety Report 21422811 (Version 1)
Quarter: 2022Q4

REPORT INFORMATION
  Report Type: Spontaneous
  Country: US (occurrence: None)
  Receive Date: 20221007
  Receipt Date: 20221007
  Transmission Date: 20230113
  Serious: No
  Sender: FDA-Public Use
  Company Number: None

PATIENT

DRUGS (1)
  1. CHLORHEXIDINE GLUCONATE [Suspect]
     Active Substance: CHLORHEXIDINE GLUCONATE

REACTIONS (5)
  - Off label use [None]
  - Product label confusion [None]
  - Product packaging issue [None]
  - Product temperature excursion issue [None]
  - Device safety feature issue [None]

NARRATIVE: CASE EVENT DATE: 20220825
